FAERS Safety Report 6431265-2 (Version None)
Quarter: 2009Q4

REPORT INFORMATION
  Report Type: 
  Country: None (occurrence: None)
  Receive Date: 20091105
  Receipt Date: 20091105
  Transmission Date: 20100525
  Serious: No
  Sender: FDA-Public Use
  Company Number: None

PATIENT
  Age: 49 Year
  Sex: Female
  Weight: 106.1417 kg

DRUGS (2)
  1. CYMBALTA [Suspect]
     Indication: ARTHRALGIA
     Dates: start: 20091015, end: 20091022
  2. CYMBALTA [Suspect]
     Indication: FIBROMYALGIA
     Dates: start: 20091015, end: 20091022

REACTIONS (1)
  - PARALYSIS [None]
